FAERS Safety Report 5906961-3 (Version None)
Quarter: 2008Q4

REPORT INFORMATION
  Report Type: 
  Country: None (occurrence: None)
  Receive Date: 20081003
  Receipt Date: 20080930
  Transmission Date: 20090506
  Serious: Yes (Death)
  Sender: FDA-Public Use
  Company Number: US-CELGENEUS-163-20785-08081190

PATIENT
  Sex: Male

DRUGS (2)
  1. THALOMID [Suspect]
     Indication: MALIGNANT MELANOMA
     Dosage: 200-150MG
     Route: 048
     Dates: start: 20080317, end: 20080401
  2. THALOMID [Suspect]
     Route: 048
     Dates: start: 20080416

REACTIONS (2)
  - METASTATIC MALIGNANT MELANOMA [None]
  - NEOPLASM PROGRESSION [None]
